FAERS Safety Report 23359780 (Version 2)
Quarter: 2024Q4

REPORT INFORMATION
  Report Type: Report from Study
  Country: GB (occurrence: GB)
  Receive Date: 20240103
  Receipt Date: 20241205
  Transmission Date: 20250114
  Serious: Yes (Other)
  Sender: SANDOZ
  Company Number: GB-SANDOZ-SDZ2023GB073218

PATIENT
  Sex: Female

DRUGS (1)
  1. ERELZI [Suspect]
     Active Substance: ETANERCEPT-SZZS
     Indication: Rheumatoid arthritis
     Dosage: 50 MG/1ML, QW
     Route: 058

REACTIONS (6)
  - Lower respiratory tract infection [Not Recovered/Not Resolved]
  - Respiratory disorder [Unknown]
  - Back pain [Unknown]
  - Chronic obstructive pulmonary disease [Unknown]
  - Dry mouth [Unknown]
  - Product dose omission issue [Unknown]
